FAERS Safety Report 16955961 (Version 1)
Quarter: 2019Q4

REPORT INFORMATION
  Report Type: Spontaneous
  Country: US (occurrence: US)
  Receive Date: 20190905
  Receipt Date: 20190905
  Transmission Date: 20200122
  Serious: No
  Sender: FDA-Public Use
  Company Number: None

PATIENT
  Sex: Male

DRUGS (7)
  1. REPATHA [Suspect]
     Active Substance: EVOLOCUMAB
  2. REPATHA [Suspect]
     Active Substance: EVOLOCUMAB
     Indication: TYPE IIA HYPERLIPIDAEMIA
     Route: 058
  3. ASPIR-LOW [Concomitant]
     Active Substance: ASPIRIN
  4. METOPROL SUC [Concomitant]
  5. BRILINTA [Concomitant]
     Active Substance: TICAGRELOR
  6. LISINOPRIL. [Concomitant]
     Active Substance: LISINOPRIL
  7. INTROGLYCERN SUB [Concomitant]

REACTIONS (1)
  - Myocardial infarction [None]
